FAERS Safety Report 12093726 (Version 2)
Quarter: 2016Q1

REPORT INFORMATION
  Report Type: Spontaneous
  Country: JP (occurrence: JP)
  Receive Date: 20160219
  Receipt Date: 20160226
  Transmission Date: 20160526
  Serious: Yes (Life-Threatening)
  Sender: FDA-Public Use
  Company Number: JP-BRACCO-009902

PATIENT
  Age: 65 Year
  Sex: Male

DRUGS (1)
  1. IOPAMIRON [Suspect]
     Active Substance: IOPAMIDOL
     Indication: ANGIOGRAM
     Route: 042
     Dates: start: 20160128, end: 20160128

REACTIONS (2)
  - Cardio-respiratory arrest [Recovered/Resolved]
  - Cerebral haemorrhage [Unknown]

NARRATIVE: CASE EVENT DATE: 20160128
